FAERS Safety Report 9856973 (Version 1)
Quarter: 2014Q1

REPORT INFORMATION
  Report Type: Spontaneous
  Country: IT (occurrence: IT)
  Receive Date: 20140130
  Receipt Date: 20140130
  Transmission Date: 20141002
  Serious: Yes (Hospitalization)
  Sender: FDA-Public Use
  Company Number: PHHY2014IT008830

PATIENT
  Age: 88 Year
  Sex: Female

DRUGS (8)
  1. GLYCERYL TRINITRATE [Suspect]
     Dosage: 10 UG, DAILY
     Route: 062
     Dates: start: 20130101, end: 20131112
  2. LISINOPRIL [Suspect]
     Dosage: UNK UKN, UNK
     Dates: start: 20130101, end: 20131112
  3. FUROSEMIDE [Suspect]
     Dosage: UNK UKN, UNK
     Dates: start: 20130101, end: 20131112
  4. BISOPROLOL [Suspect]
     Dosage: UNK UKN, UNK
     Dates: start: 20130101, end: 20131112
  5. AMLODIPINE [Suspect]
     Dosage: UNK UKN, UNK
     Dates: start: 20130101, end: 20131112
  6. LORAZEPAM [Suspect]
     Dosage: UNK UKN, UNK
     Dates: start: 20130101, end: 20131112
  7. PLAVIX [Concomitant]
  8. ATORVASTATIN [Concomitant]

REACTIONS (3)
  - Head injury [Recovering/Resolving]
  - Pelvic fracture [Recovering/Resolving]
  - Syncope [Recovering/Resolving]
